FAERS Safety Report 7573689-6 (Version None)
Quarter: 2011Q2

REPORT INFORMATION
  Report Type: 
  Country: None (occurrence: None)
  Receive Date: 20110627
  Receipt Date: 20110610
  Transmission Date: 20111010
  Serious: No
  Sender: FDA-Public Use
  Company Number: US-B.I. PHARMACEUTICALS,INC./RIDGEFIELD-2011-BP-15128BP

PATIENT
  Age: 83 Year
  Sex: Female

DRUGS (2)
  1. MEDICATION NOT FURTHER SPECIFIED [Concomitant]
  2. PRADAXA [Suspect]
     Indication: ATRIAL FIBRILLATION
     Dosage: 300 MG
     Route: 048
     Dates: start: 20110420, end: 20110501

REACTIONS (3)
  - DEHYDRATION [None]
  - ASTHENIA [None]
  - DIARRHOEA [None]
